FAERS Safety Report 5399153-0 (Version None)
Quarter: 2007Q3

REPORT INFORMATION
  Report Type: 
  Country: None (occurrence: None)
  Receive Date: 20070725
  Receipt Date: 20070725
  Transmission Date: 20080115
  Serious: Yes (Death, Hospitalization)
  Sender: FDA-Public Use
  Company Number: None

PATIENT
  Sex: Male
  Weight: 86 kg

DRUGS (4)
  1. TEMOZOLOMIDE [Suspect]
     Dosage: 150 MG/M2/DAY PO
  2. EFFEXOR XR [Concomitant]
  3. LIBRIUM [Concomitant]
  4. PROZAC [Concomitant]

REACTIONS (5)
  - DIARRHOEA [None]
  - FALL [None]
  - GAIT DISTURBANCE [None]
  - INCOHERENT [None]
  - MENTAL STATUS CHANGES [None]
